FAERS Safety Report 7313214-8 (Version None)
Quarter: 2011Q1

REPORT INFORMATION
  Report Type: 
  Country: None (occurrence: None)
  Receive Date: 20110225
  Receipt Date: 20110215
  Transmission Date: 20110831
  Serious: Yes (Hospitalization, Other)
  Sender: FDA-Public Use
  Company Number: US-ELI_LILLY_AND_COMPANY-US201008004124

PATIENT
  Sex: Female
  Weight: 58 kg

DRUGS (3)
  1. RECLAST [Concomitant]
  2. FORTEO [Suspect]
     Indication: OSTEOPOROSIS
     Dosage: 20 UG, DAILY (1/D)
     Dates: start: 20100429
  3. OXYGEN [Concomitant]

REACTIONS (6)
  - CHRONIC OBSTRUCTIVE PULMONARY DISEASE [None]
  - URINE ODOUR ABNORMAL [None]
  - MUSCLE SPASMS [None]
  - PLEURISY [None]
  - BACK PAIN [None]
  - HERPES ZOSTER [None]
